FAERS Safety Report 5165435-0 (Version None)
Quarter: 2006Q4

REPORT INFORMATION
  Report Type: 
  Country: None (occurrence: None)
  Receive Date: 20061206
  Receipt Date: 20060928
  Transmission Date: 20070319
  Serious: Yes (Hospitalization)
  Sender: FDA-Public Use
  Company Number: AU-AMGEN-US189611

PATIENT
  Sex: Male

DRUGS (5)
  1. AMG 706 [Suspect]
     Indication: METASTATIC NEOPLASM
     Route: 048
     Dates: start: 20060720
  2. PANITUMUMAB [Suspect]
     Indication: COLORECTAL CANCER
     Route: 042
     Dates: start: 20060718
  3. IRINOTECAN HCL [Suspect]
     Route: 042
  4. FLUOROURACIL [Concomitant]
     Route: 042
  5. LEUCOVORIN CALCIUM [Concomitant]
     Route: 042

REACTIONS (3)
  - DIARRHOEA [None]
  - NASOGASTRIC OUTPUT HIGH [None]
  - SMALL INTESTINAL OBSTRUCTION [None]
